FAERS Safety Report 10654155 (Version 3)
Quarter: 2017Q1

REPORT INFORMATION
  Report Type: Spontaneous
  Country: US (occurrence: US)
  Receive Date: 20141216
  Receipt Date: 20170224
  Transmission Date: 20170428
  Serious: Yes (Hospitalization, Other)
  Sender: FDA-Public Use
  Company Number: US-ELI_LILLY_AND_COMPANY-US201412001559

PATIENT
  Sex: Female

DRUGS (4)
  1. CYMBALTA [Suspect]
     Active Substance: DULOXETINE HYDROCHLORIDE
     Indication: DEPRESSION
  2. CYMBALTA [Suspect]
     Active Substance: DULOXETINE HYDROCHLORIDE
     Indication: BACK PAIN
     Dosage: UNK UNK, UNKNOWN
     Route: 065
     Dates: start: 2012
  3. CYMBALTA [Suspect]
     Active Substance: DULOXETINE HYDROCHLORIDE
     Indication: FIBROMYALGIA
  4. CYMBALTA [Suspect]
     Active Substance: DULOXETINE HYDROCHLORIDE
     Indication: PAIN

REACTIONS (39)
  - Confusional state [Unknown]
  - Disturbance in attention [Unknown]
  - Drug withdrawal syndrome [Unknown]
  - Tremor [Unknown]
  - Hot flush [Unknown]
  - Insomnia [Unknown]
  - Migraine [Unknown]
  - Dysuria [Unknown]
  - Dysphoria [Unknown]
  - Memory impairment [Unknown]
  - Syncope [Unknown]
  - Headache [Unknown]
  - Vertigo [Unknown]
  - Hyperhidrosis [Unknown]
  - Hypoaesthesia [Unknown]
  - Muscular weakness [Unknown]
  - Hypotonia [Unknown]
  - Nausea [Unknown]
  - Fatigue [Unknown]
  - Pain in extremity [Unknown]
  - Alopecia [Unknown]
  - Lethargy [Unknown]
  - Vomiting [Unknown]
  - Sleep apnoea syndrome [Unknown]
  - Cough [Unknown]
  - Joint swelling [Unknown]
  - Chest pain [Unknown]
  - Nightmare [Unknown]
  - Muscle atrophy [Unknown]
  - Chest discomfort [Unknown]
  - Dizziness [Unknown]
  - Pain [Unknown]
  - Dyspnoea [Unknown]
  - Agitation [Unknown]
  - Paraesthesia [Unknown]
  - Sleep disorder [Unknown]
  - Affect lability [Unknown]
  - Asthenia [Unknown]
  - Anxiety [Unknown]
